FAERS Safety Report 17699471 (Version 1)
Quarter: 2020Q2

REPORT INFORMATION
  Report Type: Spontaneous
  Country: GB (occurrence: GB)
  Receive Date: 20200423
  Receipt Date: 20200423
  Transmission Date: 20200714
  Serious: Yes (Disabling)
  Sender: FDA-Public Use
  Company Number: GB-PFIZER INC-2020161482

PATIENT
  Age: 74 Year
  Sex: Male
  Weight: 68 kg

DRUGS (11)
  1. GABAPENTIN. [Suspect]
     Active Substance: GABAPENTIN
     Dosage: 900 MG, 1X/DAY
     Dates: start: 20180530
  2. SIMVASTATIN. [Concomitant]
     Active Substance: SIMVASTATIN
     Dosage: 1 DF, 1X/DAY (AT NIGHT)
     Dates: start: 20191129
  3. ACIDEX [CALCIUM CARBONATE;SODIUM ALGINATE;SODIUM BICARBONATE] [Concomitant]
     Dosage: 15 ML, 1X/DAY (SPOONFUL)
     Dates: start: 20200114, end: 20200211
  4. LACTULOSE. [Concomitant]
     Active Substance: LACTULOSE
     Dosage: UNK (TAKE 10-15ML TWICE A DAY AS REQUIRED FOR CONSTI...)
     Dates: start: 20180911
  5. CANDESARTAN. [Concomitant]
     Active Substance: CANDESARTAN
     Indication: HYPERTENSION
     Dosage: 2 DF, 1X/DAY
     Dates: start: 20170103
  6. LANSOPRAZOLE. [Concomitant]
     Active Substance: LANSOPRAZOLE
     Dosage: 2 DF, 1X/DAY (IN MORNING BEFORE BREAKFAST, AND AT NIGHT)
     Dates: start: 20170103
  7. CALCIUM CARBONATE. [Concomitant]
     Active Substance: CALCIUM CARBONATE
     Dosage: 2 DF, 1X/DAY
     Dates: start: 20170405, end: 20200219
  8. FELODIPINE. [Concomitant]
     Active Substance: FELODIPINE
     Dosage: 1 DF, 1X/DAY
     Dates: start: 20181023
  9. LAXIDO [Concomitant]
     Active Substance: POLYETHYLENE GLYCOL 3350\POTASSIUM CHLORIDE\SODIUM BICARBONATE\SODIUM CHLORIDE
     Dosage: 1 DF, AS NEEDED (ONCE OR TWICE A DAY)
     Dates: start: 20170127
  10. COLECALCIFEROL [Concomitant]
     Active Substance: CHOLECALCIFEROL
     Dosage: UNK (USE AS DIRECTED)
     Dates: start: 20191231
  11. ACETYLSALICYLIC ACID [Concomitant]
     Active Substance: ASPIRIN
     Dosage: 1 DF, 1X/DAY
     Dates: start: 20120706

REACTIONS (1)
  - Hallucination [Recovered/Resolved]
